FAERS Safety Report 8468661 (Version 11)
Quarter: 2014Q1

REPORT INFORMATION
  Report Type: Spontaneous
  Country: US (occurrence: US)
  Receive Date: 20120320
  Receipt Date: 20140114
  Transmission Date: 20141002
  Serious: Yes (Hospitalization, Disabling, Other)
  Sender: FDA-Public Use
  Company Number: US-ASTRAZENECA-2011SE41525

PATIENT
  Age: 51 Year
  Sex: Female
  Weight: 95.3 kg

DRUGS (49)
  1. NEXIUM [Suspect]
     Indication: GASTROOESOPHAGEAL REFLUX DISEASE
     Route: 048
     Dates: start: 2005, end: 2012
  2. NEXIUM [Suspect]
     Indication: GASTROOESOPHAGEAL REFLUX DISEASE
     Route: 048
     Dates: start: 20050712
  3. NEXIUM [Suspect]
     Indication: GASTROOESOPHAGEAL REFLUX DISEASE
     Route: 048
     Dates: start: 2006
  4. NEXIUM [Suspect]
     Indication: GASTROOESOPHAGEAL REFLUX DISEASE
     Route: 048
     Dates: start: 2008
  5. NEXIUM [Suspect]
     Indication: GASTROOESOPHAGEAL REFLUX DISEASE
     Route: 048
     Dates: start: 20080409
  6. NEXIUM [Suspect]
     Indication: GASTROOESOPHAGEAL REFLUX DISEASE
     Route: 048
     Dates: start: 20090331, end: 20090414
  7. NEXIUM [Suspect]
     Indication: GASTROOESOPHAGEAL REFLUX DISEASE
     Route: 048
     Dates: start: 20100105
  8. NEXIUM [Suspect]
     Indication: GASTROOESOPHAGEAL REFLUX DISEASE
     Dosage: ONCE DAILY
     Route: 048
     Dates: start: 20050713
  9. NEXIUM [Suspect]
     Indication: GASTROOESOPHAGEAL REFLUX DISEASE
     Dosage: ONCE DAILY
     Route: 048
     Dates: start: 20050713, end: 2012
  10. CALCIUM [Concomitant]
     Indication: OSTEOPOROSIS
     Dates: start: 2005
  11. ISOSORBIDE/ISOSORBIDE MONONITRATE [Concomitant]
  12. ISOSORBIDE/ISOSORBIDE MONONITRATE [Concomitant]
     Dates: start: 20080409
  13. ISOSORBIDE/ISOSORBIDE MONONITRATE [Concomitant]
     Route: 048
     Dates: start: 20090331, end: 20090414
  14. ISOSORBIDE/ISOSORBIDE MONONITRATE [Concomitant]
     Dosage: ER 30 MG
     Dates: start: 20100105
  15. SPIRONOLACT [Concomitant]
  16. GABAPENTIN [Concomitant]
  17. GABAPENTIN [Concomitant]
  18. PLAVIX [Concomitant]
  19. PLAVIX [Concomitant]
     Dates: start: 20070614
  20. ATACAND HCT [Concomitant]
     Dosage: 32/12.5MG DAILY
     Route: 048
  21. ATACAND HCT [Concomitant]
     Dosage: 32/12.5 MG
     Dates: start: 20080409
  22. BENICAR HCT [Concomitant]
     Dosage: 40/12.5MG
  23. BENICAR HCT [Concomitant]
     Dosage: 40/12.5 MILLIGRAMS DAILY
     Dates: start: 20100105
  24. SINGULAIR [Concomitant]
  25. PROVERA [Concomitant]
     Indication: HAEMOSTASIS
  26. FESO4 [Concomitant]
     Indication: ANAEMIA
  27. LORTAB/NORCO [Concomitant]
     Indication: PAIN
     Dosage: 7.5 MG FOUR TIMES A DAY
     Dates: start: 20081007
  28. LORTAB/NORCO [Concomitant]
     Indication: PAIN
     Dosage: 10/325 MILLIGRAMS ONE BY MOUTH EVERY FOUR HOURS AS NEEDED
     Dates: start: 20100105
  29. LIDOCAINE [Concomitant]
     Indication: TRIGGER FINGER
     Dosage: 0.5CC
     Dates: start: 20081007
  30. KENALOG [Concomitant]
     Indication: TRIGGER FINGER
     Dosage: 0.5 CC
     Dates: start: 20081007
  31. KENALOG [Concomitant]
     Indication: TRIGGER FINGER
     Dosage: 40 MG NEBULIZED TWO TIMES DAILY ADD 40 MG TO AM AND PM NEB TREATMENT
     Route: 048
     Dates: start: 20090331, end: 20090414
  32. CRESTOR [Concomitant]
     Dates: start: 20070614
  33. ASPIRIN [Concomitant]
     Dates: start: 20070614
  34. ASPIRIN [Concomitant]
     Dates: start: 20080409
  35. ASPIRIN [Concomitant]
     Dosage: DAILY
     Dates: start: 20100105
  36. HCTZ [Concomitant]
     Dates: start: 20070614
  37. HCTZ [Concomitant]
     Dates: start: 20080409
  38. HCTZ [Concomitant]
     Dosage: TO BE TAKEN 1/2
     Route: 048
     Dates: start: 20090331, end: 20090414
  39. LIPITOR [Concomitant]
     Dates: start: 20080609
  40. ATACAND [Concomitant]
     Dosage: 32/12.5
     Dates: start: 20080409
  41. ATACAND [Concomitant]
     Route: 048
     Dates: start: 20090331, end: 20090414
  42. ULTRAM [Concomitant]
     Dates: start: 20080409
  43. ULTRAM [Concomitant]
     Route: 048
     Dates: start: 20100105
  44. ULTRAM [Concomitant]
     Route: 048
     Dates: start: 20090331, end: 20090414
  45. OMNICEF [Concomitant]
     Dates: start: 20080507
  46. KETORALAC [Concomitant]
     Dosage: 10 MILLIGRAMS BY MOUTH AS NEEDED
     Route: 048
     Dates: start: 20100105
  47. TEMAZEPAM [Concomitant]
     Route: 048
     Dates: start: 20090331, end: 20090405
  48. BENICAR [Concomitant]
     Dates: start: 20100825
  49. VITAMIN D [Concomitant]

REACTIONS (12)
  - Blood disorder [Unknown]
  - Limb discomfort [Unknown]
  - Lower limb fracture [Unknown]
  - Upper limb fracture [Unknown]
  - Ankle fracture [Unknown]
  - Limb crushing injury [Unknown]
  - Osteoporosis [Unknown]
  - Radius fracture [Unknown]
  - Emotional distress [Unknown]
  - Humerus fracture [Unknown]
  - Scar [Unknown]
  - Vitamin D deficiency [Unknown]
